FAERS Safety Report 4871129-9 (Version None)
Quarter: 2005Q4

REPORT INFORMATION
  Report Type: 
  Country: None (occurrence: None)
  Receive Date: 20051229
  Receipt Date: 20051215
  Transmission Date: 20060501
  Serious: Yes (Other)
  Sender: FDA-Public Use
  Company Number: DE200512002648

PATIENT
  Age: 68 Year
  Sex: Female

DRUGS (3)
  1. CYMBALTA [Suspect]
     Indication: DEPRESSION
     Dosage: SEE IMAGE
     Route: 048
     Dates: start: 20050721, end: 20050817
  2. CYMBALTA [Suspect]
     Indication: DEPRESSION
     Dosage: SEE IMAGE
     Route: 048
     Dates: start: 20050818, end: 20050922
  3. TRANCOPAL DOLO (FLUPIRTINE MALEATE) [Concomitant]

REACTIONS (4)
  - HAEMOCHROMATOSIS [None]
  - HEPATITIS [None]
  - MUSCLE SPASMS [None]
  - SERUM FERRITIN INCREASED [None]
